FAERS Safety Report 10312165 (Version 2)
Quarter: 2014Q3

REPORT INFORMATION
  Report Type: Spontaneous
  Country: US (occurrence: US)
  Receive Date: 20140718
  Receipt Date: 20140825
  Transmission Date: 20150326
  Serious: No
  Sender: FDA-Public Use
  Company Number: US-ASTRAZENECA-2014SE49853

PATIENT
  Age: 28869 Day
  Sex: Female
  Weight: 65.8 kg

DRUGS (5)
  1. ATORVASTATIN [Concomitant]
     Active Substance: ATORVASTATIN
     Indication: BLOOD CHOLESTEROL ABNORMAL
  2. POWDER LAXATIVE [Concomitant]
     Dosage: NR DAILY
  3. PREVACID [Concomitant]
     Active Substance: LANSOPRAZOLE
     Dosage: NR DAILY
  4. TOPROL XL [Suspect]
     Active Substance: METOPROLOL SUCCINATE
     Indication: FOETAL HEART RATE INCREASED
     Route: 048
  5. VALIUM [Concomitant]
     Active Substance: DIAZEPAM
     Indication: ANXIETY

REACTIONS (4)
  - Dyspepsia [Not Recovered/Not Resolved]
  - Intentional product misuse [Unknown]
  - Glossodynia [Recovered/Resolved]
  - Oral discomfort [Recovered/Resolved]

NARRATIVE: CASE EVENT DATE: 20140618
